FAERS Safety Report 9665248 (Version 2)
Quarter: 2013Q4

REPORT INFORMATION
  Report Type: Spontaneous
  Country: US (occurrence: US)
  Receive Date: 20131101
  Receipt Date: 20131211
  Transmission Date: 20140711
  Serious: Yes (Other)
  Sender: FDA-Public Use
  Company Number: PHEH2013US022841

PATIENT
  Sex: Female

DRUGS (17)
  1. VIVELLE DOT [Suspect]
     Indication: HORMONE REPLACEMENT THERAPY
     Dosage: 0.05 MG, QW2
     Route: 062
  2. VIVELLE DOT [Suspect]
     Dosage: 0.25 MG, QW2
     Route: 062
  3. VIVELLE DOT [Suspect]
     Dosage: 0.05 MG, QW2
     Route: 062
  4. METOPROLOL [Concomitant]
     Indication: BLOOD PRESSURE ORTHOSTATIC INCREASED
     Dosage: 12.5-50 MG ONCE PER DAY
     Route: 048
  5. OXYCODONE [Concomitant]
     Indication: PAIN
     Dosage: UNK UKN, UNK
  6. LIPITOR [Concomitant]
     Indication: BLOOD CHOLESTEROL
     Dosage: UNK UKN, UNK
  7. DHEA [Concomitant]
     Dosage: 25 MG, QD
  8. METFORMIN [Concomitant]
     Indication: DIABETES MELLITUS
     Dosage: 500 MG, QD
  9. PRILOSEC [Concomitant]
     Indication: ABDOMINAL DISCOMFORT
     Dosage: 20 MG, PRN
  10. REMERON [Concomitant]
     Dosage: 60 MG, QD
  11. VALIUM [Concomitant]
     Dosage: 5 MG, QID
  12. MAG-TAB [Concomitant]
     Dosage: 81 MG, QD
  13. VITAMIN D3 [Concomitant]
     Dosage: 1000 IU, BID
  14. VITAMIN B12 [Concomitant]
     Dosage: SHOT EVERY 2 WEEKS
  15. VITAMIN B C COMPLEX [Concomitant]
     Dosage: UNK UKN, QD
  16. PHENERGAN                          /01851401/ [Concomitant]
     Indication: NAUSEA
     Dosage: UNK UKN, PRN
  17. PHENERGAN                          /01851401/ [Concomitant]
     Indication: MIGRAINE

REACTIONS (7)
  - Fibromyalgia [Unknown]
  - Cyst [Unknown]
  - Secondary hypothyroidism [Unknown]
  - Endometriosis [Unknown]
  - Vulvovaginal dryness [Unknown]
  - Hyperhidrosis [Unknown]
  - Headache [Unknown]
